FAERS Safety Report 10215662 (Version 1)
Quarter: 2014Q2

REPORT INFORMATION
  Report Type: Spontaneous
  Country: US (occurrence: None)
  Receive Date: 20140603
  Receipt Date: 20140603
  Transmission Date: 20141212
  Serious: Yes (Life-Threatening, Hospitalization)
  Sender: FDA-Public Use
  Company Number: None

PATIENT
  Age: 46 Year
  Sex: Female
  Weight: 25.86 kg

DRUGS (3)
  1. ONDANSETRON [Suspect]
     Route: 042
  2. ZOFRAN [Concomitant]
  3. DESVELAFAXINE (PRISTIQ) [Concomitant]

REACTIONS (3)
  - Torsade de pointes [None]
  - Bradycardia [None]
  - Ventricular extrasystoles [None]
